FAERS Safety Report 7395390-4 (Version None)
Quarter: 2011Q2

REPORT INFORMATION
  Report Type: 
  Country: None (occurrence: None)
  Receive Date: 20110405
  Receipt Date: 20110324
  Transmission Date: 20111010
  Serious: Yes (Other)
  Sender: FDA-Public Use
  Company Number: PHHY2010AU85960

PATIENT
  Age: 74 Year
  Sex: Male

DRUGS (5)
  1. OLANZAPINE [Suspect]
     Indication: MAJOR DEPRESSION
     Dosage: 2.5 MG
  2. MIRTAZAPINE [Suspect]
     Indication: MAJOR DEPRESSION
     Dosage: 15 MG, UNK
  3. OLANZAPINE [Suspect]
     Dosage: 2.5 MG, BID
  4. QUETIAPINE [Suspect]
     Dosage: 25 MG, BID
  5. MIRTAZAPINE [Suspect]
     Dosage: 30 MG, BID

REACTIONS (6)
  - DEMENTIA WITH LEWY BODIES [None]
  - MUSCLE RIGIDITY [None]
  - BLOOD CREATINE PHOSPHOKINASE INCREASED [None]
  - PYREXIA [None]
  - NEUROLEPTIC MALIGNANT SYNDROME [None]
  - CONFUSIONAL STATE [None]
